FAERS Safety Report 15863644 (Version 3)
Quarter: 2019Q1

REPORT INFORMATION
  Report Type: Spontaneous
  Country: CN (occurrence: CN)
  Receive Date: 20190124
  Receipt Date: 20190304
  Transmission Date: 20190417
  Serious: Yes (Disabling, Other)
  Sender: FDA-Public Use
  Company Number: CN-PFIZER INC-2019030973

PATIENT
  Age: 42 Year
  Sex: Male

DRUGS (10)
  1. GEMCITABINE [Suspect]
     Active Substance: GEMCITABINE\GEMCITABINE HYDROCHLORIDE
     Dosage: 1.8 G, UNK
  2. CISPLATIN. [Suspect]
     Active Substance: CISPLATIN
     Dosage: 70 MG, UNK
  3. CISPLATIN. [Suspect]
     Active Substance: CISPLATIN
     Dosage: 120 MG, UNK
  4. DEXAMETHASONE. [Suspect]
     Active Substance: DEXAMETHASONE
     Dosage: 20 MG, UNK
  5. DEXAMETHASONE. [Suspect]
     Active Substance: DEXAMETHASONE
     Dosage: 5 MG, UNK
  6. METHOTREXATE SODIUM. [Suspect]
     Active Substance: METHOTREXATE SODIUM
     Dosage: 2 G, UNK
  7. PEGASPARGASE [Suspect]
     Active Substance: PEGASPARGASE
     Dosage: 3750 IU, UNK
  8. METHOTREXATE SODIUM. [Suspect]
     Active Substance: METHOTREXATE SODIUM
     Indication: LYMPHOMA
     Dosage: 1.5 G, UNK
     Route: 041
  9. DEXAMETHASONE. [Suspect]
     Active Substance: DEXAMETHASONE
     Dosage: 10 MG, TWICE DAILY (EVERY 12 HOURS)
  10. GEMCITABINE [Suspect]
     Active Substance: GEMCITABINE\GEMCITABINE HYDROCHLORIDE
     Dosage: 1 G, UNK

REACTIONS (15)
  - Seizure [Recovering/Resolving]
  - Muscular weakness [Unknown]
  - Dyskinesia [Unknown]
  - Bone marrow failure [Recovered/Resolved]
  - Dysarthria [Recovering/Resolving]
  - Dysuria [Unknown]
  - Abdominal pain upper [Recovering/Resolving]
  - Pyrexia [Unknown]
  - Paraesthesia [Recovering/Resolving]
  - Abdominal pain [Recovering/Resolving]
  - Diarrhoea [Recovering/Resolving]
  - Decreased appetite [Recovering/Resolving]
  - Choking [Unknown]
  - Nausea [Recovering/Resolving]
  - Hypoaesthesia [Unknown]
